FAERS Safety Report 5031751-6 (Version None)
Quarter: 2006Q2

REPORT INFORMATION
  Report Type: 
  Country: None (occurrence: None)
  Receive Date: 20060619
  Receipt Date: 20060602
  Transmission Date: 20061013
  Serious: Yes (Other)
  Sender: FDA-Public Use
  Company Number: GB-2006-013748

PATIENT
  Sex: Female

DRUGS (1)
  1. BETASERON [Suspect]
     Dates: start: 20000101

REACTIONS (1)
  - MALIGNANT OVARIAN CYST [None]
